FAERS Safety Report 6136288-9 (Version None)
Quarter: 2009Q1

REPORT INFORMATION
  Report Type: 
  Country: None (occurrence: None)
  Receive Date: 20090330
  Receipt Date: 20090316
  Transmission Date: 20090719
  Serious: Yes (Death, Hospitalization)
  Sender: FDA-Public Use
  Company Number: US-BRISTOL-MYERS SQUIBB COMPANY-14458038

PATIENT
  Age: 48 Year
  Sex: Male

DRUGS (6)
  1. PRINIVIL [Suspect]
     Route: 048
  2. METFORMIN HCL [Suspect]
     Route: 065
  3. ZOCOR [Suspect]
     Dosage: FORMULATIONL:TABS
     Route: 048
  4. LITHIUM CARBONATE [Suspect]
     Route: 065
  5. ALLOPURINOL [Suspect]
     Route: 065
  6. ZETIA [Suspect]
     Dosage: TABS
     Route: 048

REACTIONS (2)
  - DEATH [None]
  - DRUG TOXICITY [None]
